FAERS Safety Report 5957212-5 (Version None)
Quarter: 2008Q4

REPORT INFORMATION
  Report Type: 
  Country: None (occurrence: None)
  Receive Date: 20081117
  Receipt Date: 20081117
  Transmission Date: 20090506
  Serious: No
  Sender: FDA-Public Use
  Company Number: None

PATIENT
  Sex: Female

DRUGS (1)
  1. XELODA [Suspect]
     Indication: METASTASES TO LUNG
     Dosage: 1500 BID PO
     Route: 048

REACTIONS (1)
  - MUSCULAR WEAKNESS [None]
